FAERS Safety Report 20087145 (Version 1)
Quarter: 2021Q4

REPORT INFORMATION
  Report Type: Spontaneous
  Country: DE (occurrence: DE)
  Receive Date: 20211118
  Receipt Date: 20211118
  Transmission Date: 20220303
  Serious: Yes (Other)
  Sender: FDA-Public Use
  Company Number: DE-EMBRYOTOX-202008010

PATIENT
  Age: 38 Year
  Sex: Female
  Weight: 65 kg

DRUGS (5)
  1. CITALOPRAM [Suspect]
     Active Substance: CITALOPRAM HYDROBROMIDE
     Indication: Depression
     Dosage: 20 MILLIGRAM, QD (20 [MG/D ])
     Route: 048
     Dates: start: 20200517, end: 20201121
  2. INFLUVAC TETRA [Suspect]
     Active Substance: INFLUENZA VIRUS VACCINE QUADRIVALENT TYPE A+B
     Indication: Immunisation
     Dosage: UNK
     Route: 030
     Dates: start: 20201105, end: 20201105
  3. LEVOTHYROXINE [Concomitant]
     Active Substance: LEVOTHYROXINE
     Indication: Hypothyroidism
     Dosage: 112 MICROGRAM, QD (112 [?G/D ])
     Route: 048
     Dates: start: 20200517, end: 20201121
  4. CYTOTEC [Concomitant]
     Active Substance: MISOPROSTOL
     Indication: Labour induction
     Dosage: UNK
     Route: 065
  5. LORATADINE [Concomitant]
     Active Substance: LORATADINE
     Indication: Hypersensitivity
     Dosage: UNK PRN (FROM APRIL TILL SEPTEMBER, ONLY IF REQUIRED)
     Route: 048

REACTIONS (2)
  - Stillbirth [Recovered/Resolved]
  - Exposure during pregnancy [Unknown]
